FAERS Safety Report 14345360 (Version 1)
Quarter: 2018Q1

REPORT INFORMATION
  Report Type: Spontaneous
  Country: US (occurrence: US)
  Receive Date: 20180103
  Receipt Date: 20180103
  Transmission Date: 20180509
  Serious: Yes (Death)
  Sender: FDA-Public Use
  Company Number: US-PROCTER+GAMBLE-GS17144040

PATIENT
  Sex: Female

DRUGS (2)
  1. DAYQUIL NOS [Suspect]
     Active Substance: ACETAMINOPHEN\BROMPHENIRAMINE\CHLORPHENIRAMINE\DEXTROMETHORPHAN\GUAIFENESIN\IBUPROFEN\PHENYLEPHRINE\PHENYLPROPANOLAMINE\PSEUDOEPHEDRINE
     Route: 048
  2. SLEEP APNEA MEDICATION [Suspect]
     Active Substance: UNSPECIFIED INGREDIENT

REACTIONS (1)
  - Accidental overdose [Fatal]
